FAERS Safety Report 6951462-7 (Version None)
Quarter: 2010Q3

REPORT INFORMATION
  Report Type: 
  Country: None (occurrence: None)
  Receive Date: 20100828
  Receipt Date: 20100322
  Transmission Date: 20110219
  Serious: No
  Sender: FDA-Public Use
  Company Number: US-ABBOTT-10P-163-0635085-00

PATIENT
  Sex: Female
  Weight: 81.266 kg

DRUGS (7)
  1. NIASPAN [Suspect]
     Indication: BLOOD TRIGLYCERIDES INCREASED
     Dosage: UNKNOWN LOT AND EXPIRATION.
     Route: 048
     Dates: start: 20100310
  2. NIASPAN [Suspect]
     Indication: LOW DENSITY LIPOPROTEIN INCREASED
  3. VYTORIN [Concomitant]
     Indication: BLOOD TRIGLYCERIDES INCREASED
     Route: 048
  4. VYTORIN [Concomitant]
     Indication: BLOOD CHOLESTEROL INCREASED
  5. ASPIRIN [Concomitant]
     Indication: FLUSHING
     Dosage: BREAKING IN 4 PIECES, HALF HOUR BEFORE NIASPAN
     Route: 048
     Dates: start: 20100310, end: 20100314
  6. ASPIRIN [Concomitant]
     Dosage: TAKES 1/2 TABLET, ONE HOUR BEFORE NIASPAN
     Route: 048
     Dates: start: 20100314
  7. UNKNOWN OTHER MEDICATIONS [Concomitant]
     Indication: PRODUCT USED FOR UNKNOWN INDICATION

REACTIONS (2)
  - FLUSHING [None]
  - PRURITUS [None]
